FAERS Safety Report 5096321-2 (Version None)
Quarter: 2006Q3

REPORT INFORMATION
  Report Type: 
  Country: None (occurrence: None)
  Receive Date: 20060905
  Receipt Date: 20060825
  Transmission Date: 20061208
  Serious: Yes (Death, Other)
  Sender: FDA-Public Use
  Company Number: CA-AVENTIS-200618970GDDC

PATIENT
  Age: 65 Year
  Sex: Female
  Weight: 77.3 kg

DRUGS (14)
  1. ARAVA [Suspect]
     Indication: RHEUMATOID ARTHRITIS
     Route: 048
     Dates: start: 20010612, end: 20060626
  2. SYNTHROID [Concomitant]
     Indication: THYROID DISORDER
     Route: 048
  3. FOLIC ACID [Concomitant]
     Route: 048
  4. MULTIVITAMINS, PLAIN [Concomitant]
     Dosage: DOSE: UNK
  5. PANTOPRAZOLE SODIUM [Concomitant]
     Route: 048
  6. METHOTREXATE [Concomitant]
     Route: 030
  7. AGGRENOX [Concomitant]
     Dosage: DOSE: 2 CAPS
     Route: 048
  8. DIOVAN [Concomitant]
     Route: 048
  9. FERROUS GLUCONATE [Concomitant]
     Dosage: DOSE: 3 TABLETS
     Route: 048
  10. AMITRIPTYLINE HCL [Concomitant]
     Route: 048
  11. VITAMIN D [Concomitant]
     Dosage: DOSE: UNK
  12. OXYCODONE HCL [Concomitant]
     Route: 048
  13. TYLENOL WITH CODEINE NO. 1 [Concomitant]
     Dosage: DOSE: 1 TABLET
     Route: 048
  14. XENICAL [Concomitant]
     Route: 048

REACTIONS (9)
  - ASTHENIA [None]
  - CEREBROVASCULAR ACCIDENT [None]
  - FALL [None]
  - GENERAL PHYSICAL HEALTH DETERIORATION [None]
  - HAEMOGLOBIN DECREASED [None]
  - IMPAIRED SELF-CARE [None]
  - NEUTROPENIA [None]
  - PULMONARY OEDEMA [None]
  - THYROID DISORDER [None]
